FAERS Safety Report 7175735-0 (Version None)
Quarter: 2010Q4

REPORT INFORMATION
  Report Type: 
  Country: None (occurrence: None)
  Receive Date: 20101220
  Receipt Date: 20100330
  Transmission Date: 20110411
  Serious: No
  Sender: FDA-Public Use
  Company Number: US-AMGEN-TCS403088

PATIENT

DRUGS (2)
  1. ENBREL [Suspect]
     Indication: RHEUMATOID ARTHRITIS
     Dosage: 25 MG, 2 TIMES/WK
     Route: 058
     Dates: start: 20071010
  2. HYDROXYCHLOROQUINE SULFATE [Concomitant]
     Dosage: 200 MG, BID

REACTIONS (5)
  - ARTHRALGIA [None]
  - FALL [None]
  - JOINT SPRAIN [None]
  - MOBILITY DECREASED [None]
  - WOUND [None]
